FAERS Safety Report 6941672-7 (Version None)
Quarter: 2010Q3

REPORT INFORMATION
  Report Type: 
  Country: None (occurrence: None)
  Receive Date: 20100826
  Receipt Date: 20100823
  Transmission Date: 20110219
  Serious: Yes (Hospitalization, Other)
  Sender: FDA-Public Use
  Company Number: US-ASTRAZENECA-2008UW00803

PATIENT
  Age: 18212 Day
  Sex: Female

DRUGS (8)
  1. SEROQUEL [Suspect]
     Dosage: 25 MG TID/PRN
     Route: 048
     Dates: start: 20040427
  2. SEROQUEL [Suspect]
     Dosage: 100-300 MG AT NIGHT
     Route: 048
     Dates: start: 20040629
  3. XANAX [Concomitant]
     Indication: ANXIETY
     Route: 048
     Dates: start: 20040401
  4. XANAX [Concomitant]
     Route: 048
     Dates: start: 20040629
  5. LITHIUM CARBONATE [Concomitant]
     Indication: MOOD SWINGS
     Dosage: 300-600 MG DAILY
     Dates: start: 20040427
  6. ZYPREXA [Concomitant]
     Indication: SLEEP DISORDER
  7. CELEXA [Concomitant]
     Indication: AFFECTIVE DISORDER
     Dates: start: 20040427
  8. PROZAC [Concomitant]
     Route: 048
     Dates: start: 20040629

REACTIONS (6)
  - BACK PAIN [None]
  - EXCORIATION [None]
  - FOOT FRACTURE [None]
  - LOSS OF CONSCIOUSNESS [None]
  - ROAD TRAFFIC ACCIDENT [None]
  - WOUND [None]
